FAERS Safety Report 9379110 (Version 2)
Quarter: 2013Q3

REPORT INFORMATION
  Report Type: Report from Study
  Country: US (occurrence: US)
  Receive Date: 20130702
  Receipt Date: 20130723
  Transmission Date: 20140515
  Serious: Yes (Death, Other)
  Sender: FDA-Public Use
  Company Number: PHEH2013US014096

PATIENT
  Age: 30 Year
  Sex: Female

DRUGS (2)
  1. TOBI [Suspect]
     Indication: CYSTIC FIBROSIS
     Dosage: 1 DF, BID (300MG/5ML AMP)
     Dates: start: 20060227
  2. PULMOZYME [Concomitant]
     Dosage: UNK

REACTIONS (2)
  - Death [Fatal]
  - Cardiopulmonary failure [Unknown]
